FAERS Safety Report 5706491-8 (Version None)
Quarter: 2008Q2

REPORT INFORMATION
  Report Type: 
  Country: None (occurrence: None)
  Receive Date: 20080414
  Receipt Date: 20051003
  Transmission Date: 20081010
  Serious: Yes (Hospitalization)
  Sender: FDA-Public Use
  Company Number: ABX06-05-0398

PATIENT
  Age: 65 Year
  Sex: Female
  Weight: 96.5254 kg

DRUGS (9)
  1. ABRAXANE [Suspect]
     Indication: BREAST CANCER METASTATIC
     Dosage: LAST DOSE PRIOR TO SAE 26-SEP-2005 (265 MG, EVERY WEEK), INTRAVENOUS DRIP
     Route: 041
     Dates: start: 20050815
  2. SPIRONOLACTONE [Concomitant]
  3. DIGOXIN [Concomitant]
  4. ACCUPRIL [Concomitant]
  5. FUROSEMIDE [Concomitant]
  6. WELLBUTRIN [Concomitant]
  7. EFFEXOR XR [Concomitant]
  8. KLOR-CON [Concomitant]
  9. COREG [Concomitant]

REACTIONS (2)
  - CELLULITIS [None]
  - SUBCUTANEOUS ABSCESS [None]
